FAERS Safety Report 25624818 (Version 2)
Quarter: 2025Q3

REPORT INFORMATION
  Report Type: Spontaneous
  Country: US (occurrence: US)
  Receive Date: 20250731
  Receipt Date: 20250822
  Transmission Date: 20251020
  Serious: No
  Sender: HETERO
  Company Number: US-HETERO-HET2025US04242

PATIENT
  Sex: Female

DRUGS (1)
  1. MAGNESIUM SULFATE\POTASSIUM CHLORIDE\SODIUM SULFATE [Suspect]
     Active Substance: MAGNESIUM SULFATE\POTASSIUM CHLORIDE\SODIUM SULFATE
     Indication: Colonoscopy
     Route: 048

REACTIONS (1)
  - Vomiting [Not Recovered/Not Resolved]
